FAERS Safety Report 14944399 (Version 2)
Quarter: 2018Q2

REPORT INFORMATION
  Report Type: Spontaneous
  Country: US (occurrence: US)
  Receive Date: 20180528
  Receipt Date: 20180618
  Transmission Date: 20180711
  Serious: Yes (Death, Hospitalization, Other)
  Sender: FDA-Public Use
  Company Number: US-009507513-1805USA012549

PATIENT
  Age: 61 Year
  Sex: Female

DRUGS (1)
  1. KEYTRUDA [Suspect]
     Active Substance: PEMBROLIZUMAB
     Indication: ENDOMETRIAL CANCER
     Dosage: 200 MG, Q3W
     Route: 042
     Dates: start: 20170929, end: 20170929

REACTIONS (6)
  - Pulmonary embolism [Unknown]
  - Vaginal haemorrhage [Unknown]
  - Deep vein thrombosis [Unknown]
  - Product use in unapproved indication [Unknown]
  - Malignant neoplasm progression [Fatal]
  - Drug dose omission [Unknown]

NARRATIVE: CASE EVENT DATE: 2017
